FAERS Safety Report 22113413 (Version 2)
Quarter: 2023Q1

REPORT INFORMATION
  Report Type: Spontaneous
  Country: DE (occurrence: DE)
  Receive Date: 20230320
  Receipt Date: 20230331
  Transmission Date: 20230417
  Serious: Yes (Hospitalization)
  Sender: FDA-Public Use
  Company Number: DE-SA-SAC20230302000473

PATIENT
  Age: 65 Year
  Sex: Female
  Weight: 44.5 kg

DRUGS (8)
  1. DEXAMETHASONE [Suspect]
     Active Substance: DEXAMETHASONE
     Indication: Plasma cell myeloma refractory
     Dosage: 20 MG, QD
     Route: 065
     Dates: start: 20230223, end: 20230223
  2. ISATUXIMAB [Suspect]
     Active Substance: ISATUXIMAB
     Indication: Plasma cell myeloma refractory
     Dosage: UNK
     Route: 065
     Dates: start: 20230223, end: 20230223
  3. CARFILZOMIB [Suspect]
     Active Substance: CARFILZOMIB
     Indication: Plasma cell myeloma refractory
     Dosage: 20 MG/M2, QD
     Route: 065
     Dates: start: 20230223, end: 20230223
  4. NOVALGIN [Concomitant]
     Indication: Cancer pain
     Dosage: UNK
     Route: 065
     Dates: start: 202301
  5. ACYCLOVIR [Concomitant]
     Active Substance: ACYCLOVIR
     Indication: Infection prophylaxis
     Dosage: UNK
     Route: 065
     Dates: start: 20230221
  6. MAGNESIUM [Concomitant]
     Active Substance: MAGNESIUM
     Indication: Paraesthesia
     Dosage: UNK
     Route: 065
     Dates: start: 202301
  7. CLEMASTINE [Concomitant]
     Active Substance: CLEMASTINE
     Indication: Product used for unknown indication
     Dosage: UNK UNK, QCY
     Route: 065
     Dates: start: 20230223
  8. ACETAMINOPHEN [Concomitant]
     Active Substance: ACETAMINOPHEN
     Indication: Product used for unknown indication
     Dosage: UNK UNK, QCY
     Route: 065
     Dates: start: 20230223

REACTIONS (2)
  - Infusion related reaction [Recovered/Resolved]
  - Syncope [Recovered/Resolved]

NARRATIVE: CASE EVENT DATE: 20230223
